FAERS Safety Report 17646173 (Version 1)
Quarter: 2020Q2

REPORT INFORMATION
  Report Type: Spontaneous
  Country: DE (occurrence: DE)
  Receive Date: 20200408
  Receipt Date: 20200408
  Transmission Date: 20200713
  Serious: Yes (Hospitalization)
  Sender: FDA-Public Use
  Company Number: DE-TEVA-2020-DE-1220470

PATIENT
  Age: 30 Month
  Sex: Female
  Weight: 9 kg

DRUGS (6)
  1. METOPROLOL 2MG RETARD [Concomitant]
     Indication: CARDIAC VALVE DISEASE
     Dosage: 6 MILLIGRAM DAILY; 2-2-2MG
     Route: 048
     Dates: start: 20190101
  2. HYDROCHLOROTHIAZID [Concomitant]
     Active Substance: HYDROCHLOROTHIAZIDE
     Dosage: 16 MILLIGRAM DAILY; 8-0-8MG
     Route: 048
     Dates: start: 20180808
  3. OMEPRAZOL [Concomitant]
     Active Substance: OMEPRAZOLE
     Indication: VARICES OESOPHAGEAL
     Dosage: 16 MILLIGRAM DAILY; 8-0-8MG
     Route: 048
     Dates: start: 20181227
  4. AMOXICILLIN / CLAVULANSAURE [Suspect]
     Active Substance: AMOXICILLIN\CLAVULANIC ACID
     Indication: PYREXIA
  5. ASPIRIN. [Concomitant]
     Active Substance: ASPIRIN
     Indication: CARDIAC VALVE DISEASE
     Dosage: 25 MILLIGRAM DAILY; 25-0-0MG
     Route: 048
  6. AMOXICILLIN / CLAVULANSAURE [Suspect]
     Active Substance: AMOXICILLIN\CLAVULANIC ACID
     Indication: RESPIRATORY TRACT INFECTION
     Route: 048
     Dates: start: 20190201, end: 20190207

REACTIONS (5)
  - Swelling face [Recovered/Resolved]
  - Cyanosis [Recovered/Resolved]
  - Seizure [Recovered/Resolved]
  - Screaming [Recovered/Resolved]
  - Musculoskeletal stiffness [Recovered/Resolved]

NARRATIVE: CASE EVENT DATE: 20190202
